FAERS Safety Report 10946727 (Version 2)
Quarter: 2015Q2

REPORT INFORMATION
  Report Type: Spontaneous
  Country: CA (occurrence: CA)
  Receive Date: 20150323
  Receipt Date: 20150402
  Transmission Date: 20150821
  Serious: Yes (Hospitalization, Other)
  Sender: FDA-Public Use
  Company Number: CA-PFIZER INC-2015097106

PATIENT
  Age: 69 Year
  Sex: Male

DRUGS (4)
  1. EFFEXOR XR [Suspect]
     Active Substance: VENLAFAXINE HYDROCHLORIDE
     Dosage: DOUBLED DOSE
  2. ATIVAN [Suspect]
     Active Substance: LORAZEPAM
     Dosage: UNK
  3. EFFEXOR XR [Suspect]
     Active Substance: VENLAFAXINE HYDROCHLORIDE
     Indication: DEPRESSION
     Dosage: UNK
  4. REMERON [Concomitant]
     Active Substance: MIRTAZAPINE
     Dosage: 30 MG, UNK

REACTIONS (4)
  - Withdrawal syndrome [Not Recovered/Not Resolved]
  - Anxiety [Unknown]
  - Malaise [Unknown]
  - Suicide attempt [Not Recovered/Not Resolved]
